FAERS Safety Report 15764846 (Version 2)
Quarter: 2018Q4

REPORT INFORMATION
  Report Type: Report from Study
  Country: GR (occurrence: GR)
  Receive Date: 20181227
  Receipt Date: 20181231
  Transmission Date: 20190205
  Serious: Yes (Death, Life-Threatening, Hospitalization)
  Sender: FDA-Public Use
  Company Number: GR-ROCHE-2210099

PATIENT
  Age: 75 Year
  Sex: Female
  Weight: 84 kg

DRUGS (11)
  1. DEXAMETHASONE. [Concomitant]
     Active Substance: DEXAMETHASONE
     Indication: PROPHYLAXIS
     Route: 048
     Dates: start: 20181122, end: 20181122
  2. DEXAMETHASONE. [Concomitant]
     Active Substance: DEXAMETHASONE
     Route: 042
     Dates: start: 20181123, end: 20181123
  3. FENISTIL (GREECE) [Concomitant]
     Indication: PROPHYLAXIS
     Route: 065
     Dates: start: 20181123, end: 20181123
  4. CONCOR [Concomitant]
     Active Substance: BISOPROLOL FUMARATE
     Indication: HYPERTENSION
  5. PACLITAXEL. [Suspect]
     Active Substance: PACLITAXEL
     Indication: OVARIAN CANCER
     Dosage: ON 12/OCT/2018, SHE RECEIVED THE MOST RECENT DOSE OF PACLITAXEL (269.3 MG) ONSET OF 1ST OCCURANCE OF
     Route: 042
     Dates: start: 20180921
  6. RIVAROXABAN [Suspect]
     Active Substance: RIVAROXABAN
     Indication: ANTICOAGULANT THERAPY
     Route: 065
  7. XARELTO [Concomitant]
     Active Substance: RIVAROXABAN
     Indication: ATRIAL FIBRILLATION
  8. BEVACIZUMAB. [Suspect]
     Active Substance: BEVACIZUMAB
     Indication: OVARIAN CANCER
     Dosage: ON 12/OCT/2018, SHE RECEIVEDE MOST RECENT DOSE OF BLINDED ATEZOLIZUMAB PRIOR TO ONSET OF 1ST OCCURAN
     Route: 042
     Dates: start: 20181012
  9. T4 [Concomitant]
     Active Substance: LEVOTHYROXINE
     Indication: HYPOTHYROIDISM
     Route: 065
     Dates: end: 20181123
  10. ATEZOLIZUMAB. [Suspect]
     Active Substance: ATEZOLIZUMAB
     Indication: OVARIAN CANCER
     Dosage: ON 12/OCT/2018, SHE RECEIVEDE MOST RECENT DOSE OF BLINDED ATEZOLIZUMAB PRIOR TO ONSET OF 1ST OCCURAN
     Route: 042
     Dates: start: 20180921
  11. CARBOPLATIN. [Suspect]
     Active Substance: CARBOPLATIN
     Indication: OVARIAN CANCER
     Dosage: AT A DOSE TO ACHIEVE A TARGET AREA UNDER THE CURVE (AUC) OF 6 MILLIGRAMS PER MILLILITER*MINUTE (MG/M
     Route: 042
     Dates: start: 20180921

REACTIONS (4)
  - Anal haemorrhage [Recovered/Resolved]
  - Rash papular [Not Recovered/Not Resolved]
  - Anal haemorrhage [Not Recovered/Not Resolved]
  - Intestinal perforation [Fatal]

NARRATIVE: CASE EVENT DATE: 20181022
